FAERS Safety Report 4460090-7 (Version None)
Quarter: 2004Q3

REPORT INFORMATION
  Report Type: 
  Country: None (occurrence: None)
  Receive Date: 20040928
  Receipt Date: 20031204
  Transmission Date: 20050211
  Serious: No
  Sender: FDA-Public Use
  Company Number: US-GLAXOSMITHKLINE-A0442026A

PATIENT
  Age: 66 Year
  Sex: Female

DRUGS (4)
  1. SEREVENT [Suspect]
     Route: 055
     Dates: start: 20030923
  2. FLOVENT [Concomitant]
  3. SINGULAIR [Concomitant]
  4. PREVACID [Concomitant]

REACTIONS (1)
  - HEADACHE [None]
